FAERS Safety Report 12236627 (Version 2)
Quarter: 2017Q4

REPORT INFORMATION
  Report Type: Spontaneous
  Country: US (occurrence: US)
  Receive Date: 20160405
  Receipt Date: 20171016
  Transmission Date: 20180320
  Serious: Yes (Other)
  Sender: FDA-Public Use
  Company Number: US-JNJFOC-20160316774

PATIENT
  Sex: Female

DRUGS (1)
  1. INVOKANA [Suspect]
     Active Substance: CANAGLIFLOZIN
     Indication: DIABETES MELLITUS MANAGEMENT
     Route: 048
     Dates: start: 2014

REACTIONS (4)
  - Weight abnormal [Unknown]
  - Diabetic ketoacidosis [Unknown]
  - Renal disorder [Unknown]
  - Nausea [Unknown]

NARRATIVE: CASE EVENT DATE: 2014
